FAERS Safety Report 4775094-4 (Version None)
Quarter: 2005Q3

REPORT INFORMATION
  Report Type: 
  Country: None (occurrence: None)
  Receive Date: 20050921
  Receipt Date: 20050912
  Transmission Date: 20060218
  Serious: Yes (Hospitalization)
  Sender: FDA-Public Use
  Company Number: US-ABBOTT-05P-163-0310711-00

PATIENT
  Sex: Female
  Weight: 57.658 kg

DRUGS (6)
  1. HUMIRA [Suspect]
     Indication: RHEUMATOID ARTHRITIS
     Route: 058
     Dates: start: 20040601, end: 20040801
  2. HUMIRA [Suspect]
     Route: 058
     Dates: start: 20041101
  3. CALCIUM GLUCONATE [Concomitant]
     Indication: MINERAL SUPPLEMENTATION
     Route: 048
  4. MULTI-VITAMINS [Concomitant]
     Indication: VITAMIN SUPPLEMENTATION
     Route: 048
  5. OMEPRAZOLE [Concomitant]
     Indication: GASTRIC DISORDER
     Route: 048
     Dates: start: 20030101
  6. LOTREL [Concomitant]
     Indication: HYPERTENSION
     Route: 048
     Dates: start: 20040701

REACTIONS (3)
  - DIZZINESS [None]
  - NODULE ON EXTREMITY [None]
  - VISION BLURRED [None]
